FAERS Safety Report 7656748-9 (Version None)
Quarter: 2011Q3

REPORT INFORMATION
  Report Type: 
  Country: None (occurrence: None)
  Receive Date: 20110804
  Receipt Date: 20110729
  Transmission Date: 20111222
  Serious: Yes (Other)
  Sender: FDA-Public Use
  Company Number: JP-PFIZER INC-2011168854

PATIENT
  Age: 56 Year
  Sex: Male

DRUGS (1)
  1. ZITHROMAX [Suspect]
     Indication: TONSILLITIS
     Dosage: 500 MG/DAY
     Route: 048
     Dates: start: 20110721, end: 20110723

REACTIONS (1)
  - VIITH NERVE PARALYSIS [None]
